FAERS Safety Report 5948499-3 (Version None)
Quarter: 2008Q4

REPORT INFORMATION
  Report Type: 
  Country: None (occurrence: None)
  Receive Date: 20081111
  Receipt Date: 20081031
  Transmission Date: 20090506
  Serious: Yes (Hospitalization)
  Sender: FDA-Public Use
  Company Number: B0544485A

PATIENT
  Age: 74 Year
  Sex: Male

DRUGS (17)
  1. ZOPHREN [Suspect]
     Indication: DRUG USE FOR UNKNOWN INDICATION
     Route: 042
     Dates: start: 20080909
  2. ARSENIC TRIOXID [Suspect]
     Dosage: 12MG PER DAY
     Route: 042
     Dates: start: 20080909, end: 20080919
  3. ZAVEDOS [Suspect]
     Dosage: 18MG PER DAY
     Route: 042
     Dates: start: 20080909, end: 20080917
  4. GRANOCYTE [Suspect]
     Route: 042
     Dates: start: 20080922
  5. ROCEPHIN [Suspect]
     Indication: DRUG USE FOR UNKNOWN INDICATION
     Route: 042
     Dates: start: 20080909
  6. OFLOCET [Suspect]
     Route: 042
     Dates: start: 20080909
  7. SOLU-MEDROL [Concomitant]
     Route: 065
     Dates: start: 20080909
  8. BRICANYL [Concomitant]
     Route: 055
     Dates: start: 20080909, end: 20080922
  9. PLAVIX [Concomitant]
  10. AMLOD [Concomitant]
     Route: 065
  11. NEBIVOLOL HCL [Concomitant]
     Route: 065
  12. OMEPRAZOLE [Concomitant]
     Route: 065
  13. ZOLPIDEM [Concomitant]
     Route: 065
  14. PRIMPERAN [Concomitant]
     Route: 065
  15. ACUPAN [Concomitant]
     Route: 065
  16. LOVENOX [Concomitant]
     Indication: PULMONARY EMBOLISM
     Route: 065
  17. VESANOID [Concomitant]
     Dosage: 45MGM2 PER DAY
     Route: 065
     Dates: start: 20080731, end: 20080903

REACTIONS (9)
  - CHILLS [None]
  - DYSPNOEA [None]
  - HYPOXIA [None]
  - INTERCOSTAL RETRACTION [None]
  - INTERSTITIAL LUNG DISEASE [None]
  - LUNG INFILTRATION [None]
  - PERICARDIAL EFFUSION [None]
  - PYREXIA [None]
  - SKIN DISCOLOURATION [None]
